FAERS Safety Report 14787106 (Version 1)
Quarter: 2018Q2

REPORT INFORMATION
  Report Type: Report from Study
  Country: None (occurrence: BR)
  Receive Date: 20180420
  Receipt Date: 20180420
  Transmission Date: 20180711
  Serious: Yes (Other)
  Sender: FDA-Public Use
  Company Number: BR-ABBVIE-18K-020-2329591-00

PATIENT
  Age: 41 Year
  Sex: Female
  Weight: 58 kg

DRUGS (2)
  1. HUMIRA [Suspect]
     Active Substance: ADALIMUMAB
     Indication: UVEITIS
     Route: 058
     Dates: start: 20170825
  2. TIBOLONE [Concomitant]
     Active Substance: TIBOLONE
     Indication: MENOPAUSE

REACTIONS (17)
  - Phobia [Unknown]
  - Menopause [Unknown]
  - Nervousness [Not Recovered/Not Resolved]
  - Finger deformity [Unknown]
  - Gastritis bacterial [Unknown]
  - Insomnia [Not Recovered/Not Resolved]
  - Nervous system disorder [Recovering/Resolving]
  - Eye haemorrhage [Unknown]
  - Dysphonia [Recovering/Resolving]
  - Cervix inflammation [Recovered/Resolved]
  - Intraocular pressure decreased [Unknown]
  - Agitation [Unknown]
  - Candida infection [Unknown]
  - Injection site pain [Recovering/Resolving]
  - Hypotension [Unknown]
  - Hypersensitivity [Unknown]
  - Optic neuritis [Unknown]

NARRATIVE: CASE EVENT DATE: 201712
